FAERS Safety Report 21203673 (Version 3)
Quarter: 2022Q4

REPORT INFORMATION
  Report Type: Spontaneous
  Country: JP (occurrence: None)
  Receive Date: 20220811
  Receipt Date: 20221102
  Transmission Date: 20230113
  Serious: Yes (Death, Hospitalization, Other)
  Sender: FDA-Public Use
  Company Number: 2022A282947

PATIENT
  Age: 55 Year
  Sex: Male

DRUGS (5)
  1. ONDEXXYA [Suspect]
     Active Substance: ANDEXANET ALFA
     Indication: Brain stem haemorrhage
     Dosage: 400 MG AT A RATE OF 30 MG/MIN
     Route: 040
     Dates: start: 20220802, end: 20220802
  2. ONDEXXYA [Suspect]
     Active Substance: ANDEXANET ALFA
     Indication: Brain stem haemorrhage
     Dosage: 480 MG AT A RATE OF 4 MG/MIN FOR 2 HOURS
     Route: 040
     Dates: start: 20220802, end: 20220802
  3. XARELTO [Concomitant]
     Active Substance: RIVAROXABAN
     Dosage: DOSE UNKNOWN
     Route: 065
  4. CALCIUM CHLORIDE\MAGNESIUM CHLORIDE\POTASSIUM CHLORIDE\SODIUM ACETATE\ [Concomitant]
     Active Substance: CALCIUM CHLORIDE\MAGNESIUM CHLORIDE\POTASSIUM CHLORIDE\SODIUM ACETATE\SODIUM CHLORIDE
     Dosage: DRUG ADMINISTRATION TIME: AT 15:15 ON 02-AUG-2022, AT 19:30 ON 02-AUG-2022, AT 09:00 03-AUG-2022,...
     Route: 041
  5. FAMOTIDINE [Concomitant]
     Active Substance: FAMOTIDINE
     Dosage: DRUG ADMINISTRATION TIME: AT 19:30 ON 02-AUG-2022, AT 09:00 03-AUG-2022, AT 00:00 ON 04-AUG-2022
     Route: 041

REACTIONS (1)
  - Cerebellar haemorrhage [Fatal]

NARRATIVE: CASE EVENT DATE: 20220802
